FAERS Safety Report 9305462 (Version 1)
Quarter: 2013Q2

REPORT INFORMATION
  Report Type: Spontaneous
  Country: US (occurrence: US)
  Receive Date: 20130523
  Receipt Date: 20130523
  Transmission Date: 20140414
  Serious: No
  Sender: FDA-Public Use
  Company Number: US-BAYER-2013-061981

PATIENT
  Age: 67 Year
  Sex: Female
  Weight: 86.17 kg

DRUGS (4)
  1. ALEVE CAPLET [Suspect]
     Indication: ANALGESIC THERAPY
     Dosage: 2 DF, QD
     Route: 048
     Dates: start: 20130509, end: 20130510
  2. SYNTHROID [Concomitant]
  3. AVALIDE [Concomitant]
  4. BYSTOLIC [Concomitant]

REACTIONS (2)
  - Malaise [Recovered/Resolved]
  - Malaise [Recovered/Resolved]
